FAERS Safety Report 9597032 (Version 1)
Quarter: 2013Q4

REPORT INFORMATION
  Report Type: Spontaneous
  Country: US (occurrence: US)
  Receive Date: 20131004
  Receipt Date: 20131004
  Transmission Date: 20140711
  Serious: Yes (Hospitalization)
  Sender: FDA-Public Use
  Company Number: US-B.I. PHARMACEUTICALS,INC./RIDGEFIELD-2013-BI-31126BP

PATIENT
  Age: 78 Year
  Sex: Male
  Weight: 67 kg

DRUGS (12)
  1. PRADAXA [Suspect]
     Indication: ATRIAL FIBRILLATION
     Dosage: 300 MG
     Route: 048
     Dates: start: 201112
  2. PRADAXA [Suspect]
     Indication: CEREBROVASCULAR ACCIDENT PROPHYLAXIS
  3. METOPROLOL TARTRATE [Concomitant]
     Dosage: 100 MG
     Route: 048
  4. BUDESONIDE [Concomitant]
     Indication: CROHN^S DISEASE
     Dosage: 9 MG
     Route: 048
  5. HYDROXYZINE [Concomitant]
     Indication: INSOMNIA
     Dosage: 10 MG
     Route: 048
  6. MICRO-K [Concomitant]
     Indication: BLOOD POTASSIUM DECREASED
     Dosage: 20 MEQ
     Route: 048
  7. DIGOXIN [Concomitant]
     Indication: ATRIAL FIBRILLATION
     Dosage: 0.125 MG
     Route: 048
  8. CARBAMAZAPINE [Concomitant]
     Indication: BIPOLAR DISORDER
     Dosage: 200 MG
     Route: 048
  9. TRAZADONE [Concomitant]
     Indication: BIPOLAR DISORDER
     Dosage: 200 MG
     Route: 048
  10. ONDANSTERONE [Concomitant]
     Indication: NAUSEA
     Dosage: 4 MG
     Route: 048
  11. SIMVASTATIN [Concomitant]
     Indication: BLOOD CHOLESTEROL INCREASED
     Dosage: 40 MG
     Route: 048
  12. CLOPIDOGREL [Concomitant]
     Dosage: 75 MG
     Route: 048

REACTIONS (3)
  - Anaemia [Recovered/Resolved]
  - Arterial occlusive disease [Recovered/Resolved]
  - Contusion [Not Recovered/Not Resolved]
